FAERS Safety Report 24150498 (Version 2)
Quarter: 2024Q3

REPORT INFORMATION
  Report Type: Spontaneous
  Country: DE (occurrence: DE)
  Receive Date: 20240730
  Receipt Date: 20240910
  Transmission Date: 20241017
  Serious: Yes (Death, Life-Threatening, Hospitalization, Other)
  Sender: AUROBINDO
  Company Number: DE-002147023-NVSC2024DE055071

PATIENT
  Sex: Female

DRUGS (4)
  1. LETROZOLE [Suspect]
     Active Substance: LETROZOLE
     Indication: Hormone receptor positive HER2 negative breast cancer
     Dosage: 2.5 MILLIGRAM, ONCE A DAY
     Route: 048
     Dates: start: 20200130, end: 20240527
  2. KISQALI [Suspect]
     Active Substance: RIBOCICLIB
     Indication: Hormone receptor positive HER2 negative breast cancer
     Dosage: 600 MILLIGRAM (REGIMEN 21 DAYS INTAKE, 7 DAYS PAUSE)
     Route: 048
     Dates: start: 20181206, end: 20221102
  3. KISQALI [Suspect]
     Active Substance: RIBOCICLIB
     Dosage: 600 MILLIGRAM, ONCE A DAY  (REGIMEN 21 DAYS INTAKE, 7 DAYS PAUSE)
     Route: 048
     Dates: start: 20221110, end: 20240527
  4. EXEMESTANE [Concomitant]
     Active Substance: EXEMESTANE
     Indication: Hormone receptor positive HER2 negative breast cancer
     Dosage: 25 MILLIGRAM, ONCE A DAY
     Route: 048
     Dates: start: 20181206, end: 20200129

REACTIONS (13)
  - General physical health deterioration [Fatal]
  - Hepatic failure [Fatal]
  - Ocular icterus [Fatal]
  - Hepatic neuroendocrine tumour [Fatal]
  - Femoral neck fracture [Recovered/Resolved]
  - Lumbar vertebral fracture [Recovering/Resolving]
  - Pain [Not Recovered/Not Resolved]
  - Malignant neoplasm progression [Recovered/Resolved]
  - Anaemia [Recovering/Resolving]
  - Breast cancer [Recovered/Resolved]
  - Atrial fibrillation [Not Recovered/Not Resolved]
  - Metastases to bone [Recovered/Resolved]
  - Metastases to liver [Recovered/Resolved]

NARRATIVE: CASE EVENT DATE: 20240210
